FAERS Safety Report 10519781 (Version 1)
Quarter: 2014Q4

REPORT INFORMATION
  Report Type: Spontaneous
  Country: FR (occurrence: FR)
  Receive Date: 20141015
  Receipt Date: 20141015
  Transmission Date: 20150528
  Serious: Yes (Other)
  Sender: FDA-Public Use
  Company Number: FR-BRISTOL-MYERS SQUIBB COMPANY-21465703

PATIENT
  Age: 46 Year
  Sex: Male
  Weight: 47 kg

DRUGS (10)
  1. ISENTRESS [Concomitant]
     Active Substance: RALTEGRAVIR POTASSIUM
  2. UVEDOSE [Concomitant]
     Active Substance: CHOLECALCIFEROL
  3. SILDENAFIL. [Concomitant]
     Active Substance: SILDENAFIL
  4. NORVIR [Suspect]
     Active Substance: RITONAVIR
     Indication: HIV INFECTION
     Dates: start: 20120606, end: 20140806
  5. IMODIUM [Concomitant]
     Active Substance: LOPERAMIDE HYDROCHLORIDE
  6. MOTILIUM [Concomitant]
     Active Substance: DOMPERIDONE
  7. KIVEXA [Suspect]
     Active Substance: ABACAVIR SULFATE\LAMIVUDINE
     Indication: HIV INFECTION
     Route: 048
     Dates: start: 20140415
  8. CIMETIDINE [Concomitant]
     Active Substance: CIMETIDINE
  9. REYATAZ [Suspect]
     Active Substance: ATAZANAVIR SULFATE
     Indication: HIV INFECTION
     Dates: start: 20140415, end: 20140806
  10. PARACETAMOL [Concomitant]
     Active Substance: ACETAMINOPHEN

REACTIONS (6)
  - Weight decreased [Unknown]
  - Fatigue [Unknown]
  - Nausea [Unknown]
  - Muscle spasms [Unknown]
  - Insomnia [Unknown]
  - Muscular weakness [Unknown]

NARRATIVE: CASE EVENT DATE: 20140701
